FAERS Safety Report 8190096-6 (Version None)
Quarter: 2012Q1

REPORT INFORMATION
  Report Type: 
  Country: None (occurrence: None)
  Receive Date: 20120307
  Receipt Date: 20120307
  Transmission Date: 20120608
  Serious: Yes (Hospitalization)
  Sender: FDA-Public Use
  Company Number: None

PATIENT
  Age: 29 Year
  Sex: Female
  Weight: 87.543 kg

DRUGS (2)
  1. CYMBALTA [Suspect]
     Indication: DEPRESSION
     Dosage: 90 MG
     Route: 048
     Dates: start: 20111116, end: 20120304
  2. CYMBALTA [Concomitant]

REACTIONS (6)
  - BREAST PAIN [None]
  - DIZZINESS [None]
  - CONTUSION [None]
  - VOMITING [None]
  - BACK PAIN [None]
  - DYSPNOEA [None]
